FAERS Safety Report 9802443 (Version 1)
Quarter: 2014Q1

REPORT INFORMATION
  Report Type: Spontaneous
  Country: CA (occurrence: CA)
  Receive Date: 20140107
  Receipt Date: 20140107
  Transmission Date: 20141002
  Serious: Yes (Disabling)
  Sender: FDA-Public Use
  Company Number: CA-ASTRAZENECA-2014SE00898

PATIENT
  Age: 59 Year
  Sex: Male
  Weight: 100.2 kg

DRUGS (11)
  1. CRESTOR [Suspect]
     Indication: BLOOD CHOLESTEROL INCREASED
     Route: 048
     Dates: start: 2011
  2. CRESTOR [Suspect]
     Indication: BLOOD CHOLESTEROL INCREASED
     Route: 048
  3. CRESTOR [Suspect]
     Indication: BLOOD CHOLESTEROL INCREASED
     Route: 048
     Dates: end: 201311
  4. RAMIPRIL [Concomitant]
     Indication: CARDIAC DISORDER
     Route: 048
     Dates: start: 2006
  5. METFORMIN [Concomitant]
     Indication: BLOOD GLUCOSE ABNORMAL
     Route: 048
  6. METOPROLOL TARTRATE [Concomitant]
     Indication: CARDIAC DISORDER
     Route: 048
     Dates: start: 2006
  7. LANTUS [Concomitant]
     Indication: BLOOD GLUCOSE ABNORMAL
     Route: 058
  8. HUMULIN [Concomitant]
     Indication: BLOOD GLUCOSE ABNORMAL
     Route: 048
  9. ASPIRIN [Concomitant]
     Route: 048
  10. DIGOXIN [Concomitant]
     Indication: CARDIAC DISORDER
     Route: 048
     Dates: start: 201311
  11. WATER PILL [Concomitant]
     Indication: DYSURIA
     Route: 048

REACTIONS (7)
  - Muscle rupture [Unknown]
  - Activities of daily living impaired [Unknown]
  - Adverse event [Unknown]
  - Therapy cessation [Unknown]
  - Feeling hot [Unknown]
  - Arthralgia [Unknown]
  - Blood glucose increased [Unknown]
